FAERS Safety Report 8553151-4 (Version None)
Quarter: 2012Q3

REPORT INFORMATION
  Report Type: 
  Country: None (occurrence: None)
  Receive Date: 20120731
  Receipt Date: 20120723
  Transmission Date: 20120928
  Serious: Yes (Hospitalization)
  Sender: FDA-Public Use
  Company Number: US-JNJFOC-20091206029

PATIENT
  Sex: Female
  Weight: 51.3 kg

DRUGS (6)
  1. INFLIXIMAB [Suspect]
     Indication: CROHN'S DISEASE
     Route: 042
     Dates: start: 20090218
  2. INFLIXIMAB [Suspect]
     Route: 042
     Dates: start: 20110331
  3. MESALAMINE [Concomitant]
     Route: 048
  4. ANTIBIOTICS [Concomitant]
     Indication: CROHN'S DISEASE
  5. METHOTREXATE [Concomitant]
  6. PREDNISONE [Concomitant]
     Indication: CROHN'S DISEASE

REACTIONS (2)
  - CROHN'S DISEASE [None]
  - CLOSTRIDIAL INFECTION [None]
